FAERS Safety Report 5922654-0 (Version None)
Quarter: 2008Q3

REPORT INFORMATION
  Report Type: 
  Country: None (occurrence: None)
  Receive Date: 20080909
  Receipt Date: 20070828
  Transmission Date: 20090109
  Serious: Yes (Disabling)
  Sender: FDA-Public Use
  Company Number: 163-20785-07010131 (1)

PATIENT
  Age: 68 Year
  Sex: Male

DRUGS (8)
  1. THALOMID [Suspect]
     Indication: MULTIPLE MYELOMA
     Dosage: UP TO 800MG THEN DECREASE TO 100MG, QHS, ORAL
     Route: 048
     Dates: start: 20060118, end: 20061018
  2. VINCRISTINE [Concomitant]
  3. FENTANYL (FENTANYL) POULTICE OR PATCH) [Concomitant]
  4. WARFARIN SODIUM [Concomitant]
  5. DOXIL [Concomitant]
  6. DEXAMETHASONE TAB [Concomitant]
  7. BACTRIM DS [Concomitant]
  8. ZOMETA [Concomitant]

REACTIONS (1)
  - NEUROPATHY PERIPHERAL [None]
